FAERS Safety Report 5289624-X (Version None)
Quarter: 2007Q2

REPORT INFORMATION
  Report Type: 
  Country: None (occurrence: None)
  Receive Date: 20070406
  Receipt Date: 20070323
  Transmission Date: 20071010
  Serious: Yes (Hospitalization)
  Sender: FDA-Public Use
  Company Number: GXKR2007GB02808

PATIENT
  Age: 89 Year
  Sex: Male
  Weight: 85 kg

DRUGS (7)
  1. DICLOFENAC SODIUM [Suspect]
     Indication: BACK PAIN
     Route: 048
     Dates: start: 20061122, end: 20061123
  2. ADIZEM [Concomitant]
     Route: 048
  3. ACETYLSALICYLIC ACID SRT [Concomitant]
     Route: 048
  4. GLYCERYL TRINITRATE [Concomitant]
  5. SIMVASTATIN [Concomitant]
     Route: 048
  6. LEVOTHYROXINE SODIUM [Concomitant]
  7. CODEINE PHOSPHATE AND ACETAMINOPHEN [Suspect]
     Dates: start: 20061122, end: 20061123

REACTIONS (4)
  - DERMATOMYOSITIS [None]
  - OEDEMA [None]
  - RASH [None]
  - SWELLING [None]
